FAERS Safety Report 21436920 (Version 1)
Quarter: 2022Q4

REPORT INFORMATION
  Report Type: Spontaneous
  Country: NL (occurrence: NL)
  Receive Date: 20221010
  Receipt Date: 20221010
  Transmission Date: 20230112
  Serious: Yes (Other)
  Sender: FDA-Public Use
  Company Number: None

PATIENT
  Sex: Female
  Weight: 59 kg

DRUGS (1)
  1. SERTRALINE [Suspect]
     Active Substance: SERTRALINE HYDROCHLORIDE
     Indication: Anxiety
     Dosage: 100 MILLIGRAM, QD (1 X PER DAY)
     Route: 065
     Dates: start: 20150605

REACTIONS (3)
  - Dystonia [Not Recovered/Not Resolved]
  - Migraine [Recovering/Resolving]
  - Anxiety [Recovering/Resolving]
